FAERS Safety Report 5058115-3 (Version None)
Quarter: 2006Q3

REPORT INFORMATION
  Report Type: 
  Country: None (occurrence: None)
  Receive Date: 20060721
  Receipt Date: 20060511
  Transmission Date: 20061208
  Serious: Yes (Death, Life-Threatening, Hospitalization)
  Sender: FDA-Public Use
  Company Number: GB-2006-009367

PATIENT
  Age: 66 Year
  Sex: Male
  Weight: 112 kg

DRUGS (6)
  1. CEFTAZIDIME [Suspect]
     Indication: NEUTROPENIC SEPSIS
     Dosage: 1G THREE TIMES PER DAY
     Route: 042
     Dates: start: 20060310
  2. ZEVALIN [Suspect]
     Indication: NON-HODGKIN'S LYMPHOMA STAGE IV
     Dosage: 1U UNKNOWN
     Route: 042
     Dates: start: 20060209, end: 20060209
  3. YTTRIUM [Suspect]
     Indication: NON-HODGKIN'S LYMPHOMA STAGE IV
     Dosage: 1U UNKNOWN
     Route: 042
     Dates: start: 20060209, end: 20060209
  4. RITUXIMAB [Suspect]
     Indication: NON-HODGKIN'S LYMPHOMA STAGE IV
     Dosage: 1U UNKNOWN
     Route: 065
     Dates: start: 20060209, end: 20060209
  5. MEROPENEM [Suspect]
     Indication: NEUTROPENIC SEPSIS
     Dosage: 1G THREE TIMES PER DAY
     Route: 042
     Dates: start: 20060305
  6. CIPROFLOXACIN [Suspect]
     Indication: NEUTROPENIC SEPSIS
     Dosage: 500MG TWICE PER DAY
     Route: 042
     Dates: start: 20060317

REACTIONS (2)
  - NEUTROPENIC SEPSIS [None]
  - STEVENS-JOHNSON SYNDROME [None]
